FAERS Safety Report 20567526 (Version 9)
Quarter: 2025Q2

REPORT INFORMATION
  Report Type: Report from Study
  Country: BR (occurrence: BR)
  Receive Date: 20220308
  Receipt Date: 20250524
  Transmission Date: 20250716
  Serious: Yes (Hospitalization, Other)
  Sender: JOHNSON AND JOHNSON
  Company Number: BR-JNJFOC-20220260503

PATIENT
  Age: 49 Year
  Sex: Male
  Weight: 42 kg

DRUGS (6)
  1. STELARA [Suspect]
     Active Substance: USTEKINUMAB
     Indication: Crohn^s disease
     Route: 040
     Dates: start: 20191125
  2. STELARA [Suspect]
     Active Substance: USTEKINUMAB
     Route: 041
  3. STELARA [Suspect]
     Active Substance: USTEKINUMAB
     Indication: Crohn^s disease
     Route: 058
     Dates: start: 2020, end: 20200805
  4. STELARA [Suspect]
     Active Substance: USTEKINUMAB
     Route: 058
     Dates: start: 202010
  5. STELARA [Suspect]
     Active Substance: USTEKINUMAB
     Route: 058
     Dates: start: 2015, end: 2022
  6. DIPYRONE [Concomitant]
     Active Substance: DIPYRONE
     Indication: Pain

REACTIONS (18)
  - Dysentery [Recovering/Resolving]
  - Nephrolithiasis [Recovering/Resolving]
  - Pain in extremity [Unknown]
  - Renal failure [Recovering/Resolving]
  - Nephrectomy [Unknown]
  - Crohn^s disease [Not Recovered/Not Resolved]
  - Malnutrition [Unknown]
  - Dehydration [Unknown]
  - Infection [Unknown]
  - Electric shock sensation [Unknown]
  - Dizziness [Unknown]
  - Weight decreased [Unknown]
  - Functional gastrointestinal disorder [Unknown]
  - Pyrexia [Unknown]
  - Gait disturbance [Unknown]
  - Eating disorder [Unknown]
  - Off label use [Unknown]
  - Product dose omission issue [Unknown]

NARRATIVE: CASE EVENT DATE: 20211201
